FAERS Safety Report 8836101 (Version 1)
Quarter: 2012Q4

REPORT INFORMATION
  Report Type: 
  Country: US (occurrence: US)
  Receive Date: 20121011
  Receipt Date: 20121011
  Transmission Date: 20130627
  Serious: Yes (Hospitalization, Other)
  Sender: FDA-Public Use
  Company Number: PHEH2012US019857

PATIENT
  Sex: Female

DRUGS (2)
  1. DIOVAN HCT [Suspect]
     Indication: HYPERTENSION
     Route: 048
     Dates: start: 1997
  2. ADVIL                              /00044201/ [Concomitant]

REACTIONS (3)
  - Sinusitis [Unknown]
  - Hypertension [Unknown]
  - Primary hyperaldosteronism [Unknown]
